FAERS Safety Report 9552876 (Version 2)
Quarter: 2013Q3

REPORT INFORMATION
  Report Type: Report from Study
  Country: US (occurrence: US)
  Receive Date: 20130925
  Receipt Date: 20130925
  Transmission Date: 20140515
  Serious: Yes (Other)
  Sender: FDA-Public Use
  Company Number: US-BAYER-2013-099793

PATIENT
  Age: 72 Year
  Sex: Female

DRUGS (3)
  1. STIVARGA [Suspect]
     Indication: COLON CANCER
     Dosage: 160MG QD (40MG, 4 TABLETS DAILY)
     Route: 048
     Dates: start: 20130801
  2. STIVARGA [Suspect]
     Indication: COLON CANCER
     Dosage: 40 MG, QD
     Route: 048
     Dates: start: 201308
  3. STIVARGA [Suspect]
     Indication: COLON CANCER
     Dosage: 3 TABLETS DAILY
     Dates: start: 20130912

REACTIONS (12)
  - Dehydration [None]
  - Erythema [Not Recovered/Not Resolved]
  - Limb injury [Not Recovered/Not Resolved]
  - Skin discolouration [Not Recovered/Not Resolved]
  - Pain in extremity [Recovering/Resolving]
  - Headache [Not Recovered/Not Resolved]
  - Abdominal pain upper [None]
  - Fatigue [None]
  - Hypertension [Not Recovered/Not Resolved]
  - Dysphagia [Not Recovered/Not Resolved]
  - Dyspepsia [Not Recovered/Not Resolved]
  - Weight decreased [Not Recovered/Not Resolved]
